FAERS Safety Report 6312451-9 (Version None)
Quarter: 2009Q3

REPORT INFORMATION
  Report Type: 
  Country: None (occurrence: None)
  Receive Date: 20090813
  Receipt Date: 20090729
  Transmission Date: 20100115
  Serious: Yes (Death)
  Sender: FDA-Public Use
  Company Number: 2008AL004021

PATIENT
  Age: 66 Year
  Sex: Male

DRUGS (1)
  1. DIGOXIN [Suspect]
     Dosage: 0.125MG, DAILY, PO
     Route: 048

REACTIONS (15)
  - ANHEDONIA [None]
  - ANXIETY [None]
  - ARTERIOVENOUS GRAFT SITE INFECTION [None]
  - ECONOMIC PROBLEM [None]
  - EMOTIONAL DISORDER [None]
  - EXPOSURE TO TOXIC AGENT [None]
  - FEAR [None]
  - HYPOTENSION [None]
  - MENTAL DISORDER [None]
  - MULTIPLE INJURIES [None]
  - OEDEMA PERIPHERAL [None]
  - PAIN [None]
  - PAIN IN EXTREMITY [None]
  - TENDERNESS [None]
  - TUBERCULIN TEST POSITIVE [None]
